FAERS Safety Report 22176503 (Version 2)
Quarter: 2023Q2

REPORT INFORMATION
  Report Type: Report from Study
  Country: JP (occurrence: JP)
  Receive Date: 20230405
  Receipt Date: 20230420
  Transmission Date: 20230721
  Serious: Yes (Hospitalization)
  Sender: FDA-Public Use
  Company Number: JP-BIOCRYST PHARMACEUTICALS, INC.-2022BCR00972

PATIENT
  Age: 42 Year
  Sex: Male
  Weight: 91.4 kg

DRUGS (55)
  1. ORLADEYO [Suspect]
     Active Substance: BEROTRALSTAT HYDROCHLORIDE
     Indication: Hereditary angioedema with C1 esterase inhibitor deficiency
     Dosage: 150 MG, QD
     Route: 048
     Dates: start: 20211013
  2. INDAPAMIDE [Concomitant]
     Active Substance: INDAPAMIDE
     Indication: Hypertension
     Dosage: 1 MG, QD
     Route: 048
     Dates: start: 20201013
  3. NORVASC [Concomitant]
     Active Substance: AMLODIPINE BESYLATE
     Indication: Hypertension
     Dosage: 20 MG
     Route: 048
     Dates: start: 20210512, end: 20220920
  4. NORVASC [Concomitant]
     Active Substance: AMLODIPINE BESYLATE
     Dosage: 10 MG
     Route: 048
     Dates: start: 20210921
  5. DOXAZOSIN MESYLATE [Concomitant]
     Active Substance: DOXAZOSIN MESYLATE
     Indication: Hypertension
     Dosage: 2 MG, QD
     Dates: start: 20211020
  6. FIRAZYR [Concomitant]
     Active Substance: ICATIBANT ACETATE
     Indication: Hereditary angioedema
     Dosage: 30 MG, QD
     Route: 042
     Dates: start: 20211101
  7. FIRAZYR [Concomitant]
     Active Substance: ICATIBANT ACETATE
     Dosage: 30 MG, QD
     Route: 042
     Dates: start: 20220107
  8. FIRAZYR [Concomitant]
     Active Substance: ICATIBANT ACETATE
     Dosage: 30 MG, QD
     Route: 042
     Dates: start: 20220201
  9. FIRAZYR [Concomitant]
     Active Substance: ICATIBANT ACETATE
     Dosage: 30 MG, QD
     Route: 042
     Dates: start: 20220212
  10. FIRAZYR [Concomitant]
     Active Substance: ICATIBANT ACETATE
     Dosage: 30 MG, BID
     Route: 042
     Dates: start: 20220226
  11. FIRAZYR [Concomitant]
     Active Substance: ICATIBANT ACETATE
     Dosage: 30 MG, QD
     Route: 042
     Dates: start: 20220310
  12. FIRAZYR [Concomitant]
     Active Substance: ICATIBANT ACETATE
     Dosage: 30 MG, QD
     Route: 042
     Dates: start: 20220313
  13. FIRAZYR [Concomitant]
     Active Substance: ICATIBANT ACETATE
     Dosage: 30 MG, QD
     Route: 042
     Dates: start: 20220316
  14. FIRAZYR [Concomitant]
     Active Substance: ICATIBANT ACETATE
     Dosage: 30 MG, QD
     Route: 042
     Dates: start: 20220324
  15. FIRAZYR [Concomitant]
     Active Substance: ICATIBANT ACETATE
     Dosage: 30 MG, QD
     Route: 042
     Dates: start: 20220411
  16. FIRAZYR [Concomitant]
     Active Substance: ICATIBANT ACETATE
     Dosage: 30 MG, QD
     Route: 042
     Dates: start: 20220419
  17. FIRAZYR [Concomitant]
     Active Substance: ICATIBANT ACETATE
     Dosage: 30 MG, BID
     Route: 042
     Dates: start: 20220421
  18. FIRAZYR [Concomitant]
     Active Substance: ICATIBANT ACETATE
     Dosage: 30 MG, QD
     Route: 042
     Dates: start: 20220501
  19. FIRAZYR [Concomitant]
     Active Substance: ICATIBANT ACETATE
     Dosage: 30 MG, QD
     Route: 042
     Dates: start: 20220504
  20. FIRAZYR [Concomitant]
     Active Substance: ICATIBANT ACETATE
     Dosage: 30 MG, QD
     Route: 042
     Dates: start: 20220512
  21. FIRAZYR [Concomitant]
     Active Substance: ICATIBANT ACETATE
     Dosage: 30 MG, QD
     Route: 042
     Dates: start: 20220515
  22. FIRAZYR [Concomitant]
     Active Substance: ICATIBANT ACETATE
     Dosage: 30 MG, QD
     Route: 042
     Dates: start: 20220516
  23. FIRAZYR [Concomitant]
     Active Substance: ICATIBANT ACETATE
     Dosage: 30 MG, QD
     Route: 042
     Dates: start: 20220526
  24. FIRAZYR [Concomitant]
     Active Substance: ICATIBANT ACETATE
     Dosage: 30 MG, BID
     Route: 042
     Dates: start: 20220601
  25. FIRAZYR [Concomitant]
     Active Substance: ICATIBANT ACETATE
     Dosage: 30 MG, QD
     Route: 042
     Dates: start: 20220605
  26. FIRAZYR [Concomitant]
     Active Substance: ICATIBANT ACETATE
     Dosage: 30 MG, QD
     Route: 042
     Dates: start: 20220608
  27. FIRAZYR [Concomitant]
     Active Substance: ICATIBANT ACETATE
     Dosage: 30 MG, BID
     Route: 042
     Dates: start: 20220615
  28. FIRAZYR [Concomitant]
     Active Substance: ICATIBANT ACETATE
     Dosage: 30 MG, QD
     Route: 042
     Dates: start: 20220621
  29. FIRAZYR [Concomitant]
     Active Substance: ICATIBANT ACETATE
     Dosage: 30 MG, QD
     Route: 042
     Dates: start: 20220628
  30. FIRAZYR [Concomitant]
     Active Substance: ICATIBANT ACETATE
     Dosage: 30 MG, BID
     Route: 042
     Dates: start: 202207
  31. FIRAZYR [Concomitant]
     Active Substance: ICATIBANT ACETATE
     Dosage: 30 MG, QD
     Route: 042
     Dates: start: 202207
  32. FIRAZYR [Concomitant]
     Active Substance: ICATIBANT ACETATE
     Dosage: 30 MG, BID
     Route: 042
     Dates: start: 202207
  33. FIRAZYR [Concomitant]
     Active Substance: ICATIBANT ACETATE
     Dosage: 30 MG, QD
     Route: 042
     Dates: start: 202207
  34. FIRAZYR [Concomitant]
     Active Substance: ICATIBANT ACETATE
     Dosage: 30 MG, BID
     Route: 042
     Dates: start: 202207
  35. FIRAZYR [Concomitant]
     Active Substance: ICATIBANT ACETATE
     Dosage: 30 MG, QD
     Route: 042
     Dates: start: 202207
  36. FIRAZYR [Concomitant]
     Active Substance: ICATIBANT ACETATE
     Dosage: 30 MG, BID
     Route: 042
     Dates: start: 202207
  37. FIRAZYR [Concomitant]
     Active Substance: ICATIBANT ACETATE
     Dosage: 30 MG, QD
     Route: 042
     Dates: start: 20220726
  38. FIRAZYR [Concomitant]
     Active Substance: ICATIBANT ACETATE
     Dosage: 30 MG, QD
     Route: 042
     Dates: start: 202208
  39. FIRAZYR [Concomitant]
     Active Substance: ICATIBANT ACETATE
     Dosage: 30 MG, QD
     Route: 042
     Dates: start: 202208
  40. FIRAZYR [Concomitant]
     Active Substance: ICATIBANT ACETATE
     Dosage: 30 MG, QD
     Route: 042
     Dates: start: 202208
  41. FIRAZYR [Concomitant]
     Active Substance: ICATIBANT ACETATE
     Dosage: 30 MG, QD
     Route: 042
     Dates: start: 20220812
  42. FIRAZYR [Concomitant]
     Active Substance: ICATIBANT ACETATE
     Dosage: 30 MG, QD
     Route: 042
     Dates: start: 202208
  43. FIRAZYR [Concomitant]
     Active Substance: ICATIBANT ACETATE
     Dosage: 30 MG, QD
     Route: 042
     Dates: start: 20220824
  44. FIRAZYR [Concomitant]
     Active Substance: ICATIBANT ACETATE
     Dosage: 30 MG, QD
     Route: 042
     Dates: start: 20220907
  45. FIRAZYR [Concomitant]
     Active Substance: ICATIBANT ACETATE
     Dosage: 30 MG, QD
     Route: 042
     Dates: start: 20220910
  46. FIRAZYR [Concomitant]
     Active Substance: ICATIBANT ACETATE
     Dosage: 30 MG, QD
     Route: 042
     Dates: start: 20220912
  47. FIRAZYR [Concomitant]
     Active Substance: ICATIBANT ACETATE
     Dosage: 30 MG, QD
     Route: 042
     Dates: start: 20220914
  48. FIRAZYR [Concomitant]
     Active Substance: ICATIBANT ACETATE
     Dosage: 30 MG, BID
     Route: 042
     Dates: start: 20220917
  49. FIRAZYR [Concomitant]
     Active Substance: ICATIBANT ACETATE
     Dosage: 30 MG, QD
     Route: 042
     Dates: start: 20220919
  50. FIRAZYR [Concomitant]
     Active Substance: ICATIBANT ACETATE
     Dosage: 30 MG, QD
     Route: 042
     Dates: start: 20221001
  51. FIRAZYR [Concomitant]
     Active Substance: ICATIBANT ACETATE
     Dosage: 30 MG, QD
     Route: 042
     Dates: start: 20221003
  52. FIRAZYR [Concomitant]
     Active Substance: ICATIBANT ACETATE
     Dosage: 30 MG, QD
     Route: 042
     Dates: start: 20221005
  53. FIRAZYR [Concomitant]
     Active Substance: ICATIBANT ACETATE
     Dosage: 30 MG, QD
     Route: 042
     Dates: start: 20221008
  54. FIRAZYR [Concomitant]
     Active Substance: ICATIBANT ACETATE
     Dosage: 30 MG, QD
     Route: 042
     Dates: start: 20221010
  55. FIRAZYR [Concomitant]
     Active Substance: ICATIBANT ACETATE
     Dosage: 30 MG, QD
     Route: 042
     Dates: start: 20221011

REACTIONS (1)
  - Cerebral haemorrhage [Unknown]
